FAERS Safety Report 21847610 (Version 1)
Quarter: 2023Q1

REPORT INFORMATION
  Report Type: Spontaneous
  Country: US (occurrence: US)
  Receive Date: 20230111
  Receipt Date: 20230111
  Transmission Date: 20230417
  Serious: No
  Sender: FDA-Public Use
  Company Number: US-SA-SAC20230109000098

PATIENT
  Sex: Female
  Weight: 58.51 kg

DRUGS (16)
  1. DUPIXENT [Suspect]
     Active Substance: DUPILUMAB
     Indication: Psoriasis
     Dosage: 600 MG, 1X
     Route: 058
  2. DUPIXENT [Suspect]
     Active Substance: DUPILUMAB
     Indication: Dermatitis atopic
     Dosage: 300 MG, QOW
     Route: 058
  3. MODERNA COVID-19 VACCINE [Concomitant]
     Active Substance: ELASOMERAN
     Indication: Immunisation
     Dosage: UNK
  4. MODERNA COVID-19 VACCINE [Concomitant]
     Active Substance: ELASOMERAN
     Dosage: BOOSTER
  5. PROLIA [Concomitant]
     Active Substance: DENOSUMAB
  6. LEVOTHYROXINE [Concomitant]
     Active Substance: LEVOTHYROXINE
  7. BISOPROLOL FUMARATE [Concomitant]
     Active Substance: BISOPROLOL FUMARATE
  8. LISINOPRIL [Concomitant]
     Active Substance: LISINOPRIL
  9. LEXAPRO [Concomitant]
     Active Substance: ESCITALOPRAM OXALATE
  10. LIPITOR [Concomitant]
     Active Substance: ATORVASTATIN CALCIUM
  11. METFORMIN HYDROCHLORIDE [Concomitant]
     Active Substance: METFORMIN HYDROCHLORIDE
  12. OMEPRAZOLE [Concomitant]
     Active Substance: OMEPRAZOLE
  13. CALCIUM [Concomitant]
     Active Substance: CALCIUM
  14. CARAFATE [Concomitant]
     Active Substance: SUCRALFATE
  15. VITAMINS NOS [Concomitant]
     Active Substance: VITAMINS
  16. ASPIRIN [Concomitant]
     Active Substance: ASPIRIN

REACTIONS (5)
  - Skin fissures [Unknown]
  - Hypoaesthesia [Unknown]
  - Pain in extremity [Unknown]
  - Rash [Unknown]
  - Product use in unapproved indication [Unknown]
